FAERS Safety Report 9620909 (Version 1)
Quarter: 2013Q4

REPORT INFORMATION
  Report Type: Report from Study
  Country: CA (occurrence: CA)
  Receive Date: 20131015
  Receipt Date: 20131015
  Transmission Date: 20140711
  Serious: Yes (Other)
  Sender: FDA-Public Use
  Company Number: CA-JNJFOC-20131001881

PATIENT
  Age: 44 Year
  Sex: Male
  Weight: 120.3 kg

DRUGS (3)
  1. REMICADE [Suspect]
     Indication: PSORIATIC ARTHROPATHY
     Route: 042
     Dates: start: 20081215
  2. NICODERM [Concomitant]
     Route: 065
  3. BETAMETHASONE [Concomitant]
     Route: 065

REACTIONS (2)
  - Fall [Unknown]
  - Scratch [Unknown]
